FAERS Safety Report 10446407 (Version 1)
Quarter: 2014Q3

REPORT INFORMATION
  Report Type: Spontaneous
  Country: US (occurrence: US)
  Receive Date: 20140911
  Receipt Date: 20140911
  Transmission Date: 20150326
  Serious: Yes (Hospitalization)
  Sender: FDA-Public Use
  Company Number: US-ALVOGEN-2014AL001459

PATIENT
  Age: 14 Year
  Sex: Female

DRUGS (1)
  1. OXYCODONE [Suspect]
     Active Substance: OXYCODONE
     Indication: PRODUCT USED FOR UNKNOWN INDICATION
     Route: 048

REACTIONS (6)
  - Intentional overdose [Recovering/Resolving]
  - Cardio-respiratory arrest [None]
  - Toxic encephalopathy [Recovering/Resolving]
  - Multi-organ disorder [None]
  - Suicide attempt [None]
  - Choreoathetosis [Recovering/Resolving]
